FAERS Safety Report 9432427 (Version 1)
Quarter: 2013Q3

REPORT INFORMATION
  Report Type: Spontaneous
  Country: FR (occurrence: FR)
  Receive Date: 20130731
  Receipt Date: 20130731
  Transmission Date: 20140515
  Serious: Yes (Hospitalization)
  Sender: FDA-Public Use
  Company Number: FR-PFIZER INC-2013219121

PATIENT
  Age: 35 Year
  Sex: Male

DRUGS (5)
  1. NEURONTIN [Suspect]
     Indication: MUSCLE SPASTICITY
     Dosage: 600 MG PER DAY
     Route: 048
     Dates: start: 2006
  2. DANTRIUM [Suspect]
     Indication: MUSCLE SPASTICITY
     Dosage: 25 MG, 4X/DAY
     Route: 048
     Dates: start: 200603
  3. DANTRIUM [Suspect]
     Dosage: 25 MG, 6 TIMES DAILY
  4. LIORESAL [Concomitant]
     Dosage: UNK
     Route: 048
  5. SOLU-MEDROL [Concomitant]
     Indication: MULTIPLE SCLEROSIS
     Dosage: UNK
     Route: 042
     Dates: start: 2004

REACTIONS (2)
  - Acne cystic [Not Recovered/Not Resolved]
  - Hamartoma [Not Recovered/Not Resolved]
